FAERS Safety Report 5814506-1 (Version None)
Quarter: 2008Q3

REPORT INFORMATION
  Report Type: 
  Country: None (occurrence: None)
  Receive Date: 20080715
  Receipt Date: 20080701
  Transmission Date: 20090109
  Serious: Yes (Hospitalization)
  Sender: FDA-Public Use
  Company Number: 2008S1011565

PATIENT
  Age: 64 Year
  Sex: Male

DRUGS (7)
  1. ATENOLOL [Suspect]
     Indication: DRUG USE FOR UNKNOWN INDICATION
  2. CO-PROXAMOL/00016701/)(DI-GESIC /00016701) [Suspect]
     Indication: DRUG USE FOR UNKNOWN INDICATION
  3. ENBREL [Suspect]
     Indication: RHEUMATOID ARTHRITIS
     Dosage: 25 MG
     Dates: start: 20060323
  4. VIOXX [Suspect]
     Indication: DRUG USE FOR UNKNOWN INDICATION
  5. CALCIUM (CALCIUM) [Concomitant]
  6. GLICLAZIDE (GLICLAZIDE) [Concomitant]
  7. ERGOCALCIFEROL [Concomitant]

REACTIONS (2)
  - DIVERTICULUM [None]
  - ENTEROVESICAL FISTULA [None]
